FAERS Safety Report 6475635-5 (Version None)
Quarter: 2009Q4

REPORT INFORMATION
  Report Type: 
  Country: None (occurrence: None)
  Receive Date: 20091204
  Receipt Date: 20091124
  Transmission Date: 20100525
  Serious: Yes (Hospitalization)
  Sender: FDA-Public Use
  Company Number: IT-PFIZER INC-2009302015

PATIENT
  Age: 60 Year
  Sex: Male

DRUGS (7)
  1. ADRIBLASTINA [Suspect]
     Indication: NON-HODGKIN'S LYMPHOMA
     Dosage: 90 MG CYCLIC
     Route: 042
     Dates: start: 20090528, end: 20090720
  2. VINCRISTINE [Suspect]
     Indication: NON-HODGKIN'S LYMPHOMA
     Dosage: 1.5 MG CYCLIC
     Route: 042
     Dates: start: 20090528, end: 20090720
  3. MABTHERA [Suspect]
     Indication: NON-HODGKIN'S LYMPHOMA
     Dosage: 690 MG CYCLIC
     Route: 042
     Dates: start: 20090511, end: 20090720
  4. CYCLOPHOSPHAMIDE [Suspect]
     Indication: NON-HODGKIN'S LYMPHOMA
     Dosage: 1380 MG CYCLIC
     Route: 042
     Dates: start: 20090503, end: 20090720
  5. GRANISETRON [Concomitant]
  6. FLEBOCORTID [Concomitant]
  7. CHLORPHENAMINE MALEATE [Concomitant]

REACTIONS (5)
  - ACUTE RESPIRATORY FAILURE [None]
  - BRONCHOPNEUMOPATHY [None]
  - DYSPNOEA EXERTIONAL [None]
  - HYPERPYREXIA [None]
  - SEPTIC SHOCK [None]
